FAERS Safety Report 24920869 (Version 2)
Quarter: 2025Q1

REPORT INFORMATION
  Report Type: Report from Study
  Country: JP (occurrence: JP)
  Receive Date: 20250204
  Receipt Date: 20250307
  Transmission Date: 20250408
  Serious: Yes (Other)
  Sender: Haleon PLC
  Company Number: JP-HALEON-2218705

PATIENT
  Age: 59 Year
  Sex: Male
  Weight: 83.5 kg

DRUGS (1)
  1. ALLI [Suspect]
     Active Substance: ORLISTAT
     Indication: Product used for unknown indication
     Dosage: TIMING OF TAKING: DURING MEALS TO WITHIN 1 HOUR AFTER MEALS
     Route: 048
     Dates: start: 20241122, end: 202412

REACTIONS (3)
  - Type 2 diabetes mellitus [Unknown]
  - Wrong patient received product [Unknown]
  - Overdose [Unknown]

NARRATIVE: CASE EVENT DATE: 20241201
